FAERS Safety Report 6636978-5 (Version None)
Quarter: 2010Q1

REPORT INFORMATION
  Report Type: 
  Country: None (occurrence: None)
  Receive Date: 20100301
  Receipt Date: 20090203
  Transmission Date: 20100710
  Serious: Yes (Hospitalization, Other)
  Sender: FDA-Public Use
  Company Number: RB-6039-2008

PATIENT
  Age: 5 Day
  Sex: Female

DRUGS (2)
  1. SUBUTEX [Suspect]
     Indication: DRUG DEPENDENCE
     Dosage: 8 MG TID TRANSPLACENTAL
     Route: 064
     Dates: end: 20081031
  2. PRENATAL VITAMINS [Concomitant]

REACTIONS (1)
  - DRUG WITHDRAWAL SYNDROME NEONATAL [None]
